FAERS Safety Report 10722698 (Version 1)
Quarter: 2015Q1

REPORT INFORMATION
  Report Type: Report from Study
  Country: BR (occurrence: BR)
  Receive Date: 20150120
  Receipt Date: 20150120
  Transmission Date: 20150721
  Serious: Yes (Other)
  Sender: FDA-Public Use
  Company Number: BR-GLAXOSMITHKLINE-BR2015GSK005134

PATIENT
  Age: 68 Year
  Sex: Female
  Weight: 97 kg

DRUGS (9)
  1. LORNOXICAM [Concomitant]
     Active Substance: LORNOXICAM
     Indication: INTERVERTEBRAL DISC PROTRUSION
     Dosage: 8 MG, QD
     Route: 048
     Dates: start: 2000
  2. ATORVASTATIN [Concomitant]
     Active Substance: ATORVASTATIN
     Indication: BLOOD CHOLESTEROL ABNORMAL
     Dosage: 8 MONTHS AGO, 20 MG, QD (AT NIGHT)
     Route: 048
  3. ACETAMINOPHEN. [Concomitant]
     Active Substance: ACETAMINOPHEN
     Indication: ANALGESIC THERAPY
     Dosage: 1 DF, QD IN THE MORNING OR AT NIGHT
  4. RIVOTRIL [Concomitant]
     Active Substance: CLONAZEPAM
     Indication: SEIZURE
     Dosage: 2 MG, QD
     Route: 048
     Dates: start: 1982
  5. ATORVASTATIN [Concomitant]
     Active Substance: ATORVASTATIN
     Indication: BLOOD TRIGLYCERIDES ABNORMAL
  6. ACETAMINOPHEN. [Concomitant]
     Active Substance: ACETAMINOPHEN
     Indication: HEADACHE
  7. PROPAFENONE HYDROCHLORIDE. [Suspect]
     Active Substance: PROPAFENONE HYDROCHLORIDE
     Indication: ARRHYTHMIA
     Dosage: 150 MG, BID (IN THE MORNING AND AT NIGHT)
     Dates: start: 201409
  8. TAMOXIFEN [Concomitant]
     Active Substance: TAMOXIFEN
     Indication: HORMONE SUPPRESSION THERAPY
     Dosage: 20 MG, QD
     Route: 048
     Dates: start: 20110214
  9. OMEPRAZOLE. [Concomitant]
     Active Substance: OMEPRAZOLE
     Indication: OESOPHAGITIS
     Dosage: 20 MG, QD IN THE MORNING
     Route: 048
     Dates: start: 20110214

REACTIONS (6)
  - Hypertension [Unknown]
  - Drug ineffective [Unknown]
  - Tracheal operation [Recovering/Resolving]
  - Fatigue [Not Recovered/Not Resolved]
  - Vocal cord disorder [Unknown]
  - Headache [Not Recovered/Not Resolved]

NARRATIVE: CASE EVENT DATE: 20141028
